FAERS Safety Report 10058347 (Version 1)
Quarter: 2014Q2

REPORT INFORMATION
  Report Type: Spontaneous
  Country: US (occurrence: None)
  Receive Date: 20140402
  Receipt Date: 20140402
  Transmission Date: 20141212
  Serious: Yes (Hospitalization)
  Sender: FDA-Public Use
  Company Number: AUR-APL-2014-03939

PATIENT
  Age: 61 Year
  Sex: Male

DRUGS (13)
  1. PANTOPRAZOLE [Suspect]
     Indication: PRODUCT USED FOR UNKNOWN INDICATION
  2. TRIMETHOPRIM+SULFAMETHOXAZOLE [Suspect]
     Indication: PROPHYLAXIS
  3. ATRIPLA [Suspect]
     Indication: PRODUCT USED FOR UNKNOWN INDICATION
  4. AZITHROMYCIN [Suspect]
     Indication: PRODUCT USED FOR UNKNOWN INDICATION
  5. METOPROLOL (METOPROLOL) [Concomitant]
  6. FLUTICASONE (FLUTICASONE) [Concomitant]
  7. ALBUTEROL W/IPRATROPIUM (SALBUTAMOL W/IPRATROPIUM) [Concomitant]
  8. LEVOTHYROXINE (LEVOTHYROXINE) [Concomitant]
  9. SIMVASTATIN (SIMVASTATIN) [Concomitant]
  10. CLOPIDOGREL (CLOPIDOGREL) [Concomitant]
  11. CALCIUM CARBONATE W/VITAMIN D (LEKOVIT CA) [Concomitant]
  12. HYDROXYZINE (HYDROXYZINE) [Concomitant]
  13. PAROXETINE (PAROXETINE) [Concomitant]

REACTIONS (18)
  - Rectal haemorrhage [None]
  - Haemorrhoids [None]
  - Blood sodium decreased [None]
  - Blood albumin decreased [None]
  - White blood cell count decreased [None]
  - Glucose urine present [None]
  - Anaemia [None]
  - Gastrointestinal haemorrhage [None]
  - Nephropathy toxic [None]
  - Renal failure acute [None]
  - Nephrosclerosis [None]
  - Tubulointerstitial nephritis [None]
  - Ischaemia [None]
  - Renal tubular necrosis [None]
  - Hypoperfusion [None]
  - Hypersensitivity [None]
  - IgA nephropathy [None]
  - Condition aggravated [None]
